FAERS Safety Report 10530551 (Version 2)
Quarter: 2014Q4

REPORT INFORMATION
  Report Type: Spontaneous
  Country: CN (occurrence: CN)
  Receive Date: 20141021
  Receipt Date: 20141023
  Transmission Date: 20150528
  Serious: Yes (Life-Threatening)
  Sender: FDA-Public Use
  Company Number: CN-PFIZER INC-2014288043

PATIENT
  Age: 75 Year
  Sex: Male

DRUGS (1)
  1. CORDARONE [Suspect]
     Active Substance: AMIODARONE HYDROCHLORIDE
     Indication: VENTRICULAR EXTRASYSTOLES
     Dosage: 0.2 G, 3X/DAY
     Route: 048
     Dates: start: 20140216, end: 20140220

REACTIONS (4)
  - Arrhythmia [Unknown]
  - Sinoatrial block [Recovering/Resolving]
  - Ventricular extrasystoles [Unknown]
  - Asthenia [Unknown]

NARRATIVE: CASE EVENT DATE: 20140220
